FAERS Safety Report 9424691 (Version 2)
Quarter: 2013Q3

REPORT INFORMATION
  Report Type: Spontaneous
  Country: AU (occurrence: AU)
  Receive Date: 20130729
  Receipt Date: 20130829
  Transmission Date: 20140515
  Serious: Yes (Death)
  Sender: FDA-Public Use
  Company Number: AU-B.I. PHARMACEUTICALS,INC./RIDGEFIELD-2013-AU-00908AU

PATIENT
  Age: 76 Year
  Sex: Female

DRUGS (8)
  1. TRAJENTA [Suspect]
     Indication: DIABETES MELLITUS
     Dosage: 5 MG
     Dates: start: 20120824
  2. WARFARIN [Concomitant]
  3. BETALOC [Concomitant]
  4. NEXIUM [Concomitant]
  5. LASIX [Concomitant]
  6. ZIMSTAT [Concomitant]
  7. GLICLAZIDE [Concomitant]
  8. BICOR [Concomitant]

REACTIONS (1)
  - Myocardial infarction [Fatal]
